FAERS Safety Report 14077433 (Version 1)
Quarter: 2017Q4

REPORT INFORMATION
  Report Type: Spontaneous
  Country: GB (occurrence: GB)
  Receive Date: 20171012
  Receipt Date: 20171012
  Transmission Date: 20180321
  Serious: Yes (Hospitalization, Other)
  Sender: FDA-Public Use
  Company Number: GB-SUN PHARMACEUTICAL INDUSTRIES LTD-2017RR-152021

PATIENT
  Age: 37 Year
  Sex: Male
  Weight: 103 kg

DRUGS (1)
  1. CARBOPLATIN. [Suspect]
     Active Substance: CARBOPLATIN
     Indication: ADJUVANT THERAPY
     Dosage: SINGLE DOSE
     Route: 042
     Dates: start: 20170824, end: 20170824

REACTIONS (6)
  - Fatigue [Not Recovered/Not Resolved]
  - Blindness transient [Recovering/Resolving]
  - Dermatitis acneiform [Unknown]
  - Ataxia [Recovering/Resolving]
  - Confusional state [Unknown]
  - Myalgia [Not Recovered/Not Resolved]

NARRATIVE: CASE EVENT DATE: 20170831
